FAERS Safety Report 23139030 (Version 1)
Quarter: 2023Q4

REPORT INFORMATION
  Report Type: Spontaneous
  Country: CN (occurrence: CN)
  Receive Date: 20231102
  Receipt Date: 20231102
  Transmission Date: 20240109
  Serious: Yes (Other)
  Sender: FDA-Public Use
  Company Number: CN-PFIZER INC-PV202300177350

PATIENT
  Age: 76 Year
  Sex: Female
  Weight: 62 kg

DRUGS (1)
  1. NIRMATRELVIR\RITONAVIR [Suspect]
     Active Substance: NIRMATRELVIR\RITONAVIR
     Indication: COVID-19 treatment
     Dosage: NIRMATRELVIR 300MG (2 TABLETS) AND RITONAVIR 100MG (1 TABLET), ONCE EVERY 12 HOURS
     Route: 048
     Dates: start: 20231018

REACTIONS (5)
  - Diarrhoea [Recovering/Resolving]
  - Haematuria [Recovering/Resolving]
  - White blood cells urine positive [Unknown]
  - Fungal test positive [Unknown]
  - Urinary sediment present [Unknown]

NARRATIVE: CASE EVENT DATE: 20231018
